FAERS Safety Report 9732924 (Version 3)
Quarter: 2013Q4

REPORT INFORMATION
  Report Type: Spontaneous
  Country: CH (occurrence: CH)
  Receive Date: 20131204
  Receipt Date: 20131213
  Transmission Date: 20140711
  Serious: No
  Sender: FDA-Public Use
  Company Number: CH-009507513-1310CHE005041

PATIENT
  Age: 30 Year
  Sex: Female

DRUGS (5)
  1. ELOCOM [Suspect]
     Indication: HERPES GESTATIONIS
     Dosage: STRENGTH:1MG/G
     Route: 061
     Dates: start: 20121020, end: 20121114
  2. CELESTONE CHRONODOSE [Suspect]
     Dosage: UNK
     Dates: start: 20121020, end: 20121021
  3. PREDNISONE [Suspect]
     Indication: HERPES GESTATIONIS
     Dosage: UNK, QD
     Route: 048
     Dates: start: 20121025, end: 20121226
  4. AMOXICILLIN [Suspect]
     Indication: FOLLICULITIS
     Dosage: 1 G, BID
     Route: 048
     Dates: start: 20121019, end: 20121020
  5. FENISTIL [Suspect]
     Indication: PRURITUS
     Dosage: UNK, PRN
     Route: 048
     Dates: start: 20131020

REACTIONS (2)
  - Drug ineffective [Unknown]
  - Maternal exposure during pregnancy [Recovered/Resolved]
